FAERS Safety Report 9330980 (Version 3)
Quarter: 2013Q4

REPORT INFORMATION
  Report Type: Report from Study
  Country: HK (occurrence: HK)
  Receive Date: 20130605
  Receipt Date: 20131217
  Transmission Date: 20140711
  Serious: Yes (Hospitalization, Other)
  Sender: FDA-Public Use
  Company Number: HK-ASTELLAS-2013US005830

PATIENT
  Age: 67 Year
  Sex: Male

DRUGS (19)
  1. ERLOTINIB TABLET [Suspect]
     Indication: LUNG NEOPLASM MALIGNANT
     Dosage: 150 MG, UID/QD
     Route: 048
     Dates: start: 20130411
  2. SALBUTAMOL                         /00139502/ [Concomitant]
     Indication: PRODUCT USED FOR UNKNOWN INDICATION
     Dosage: 8 DF, UNKNOWN/D
     Route: 065
     Dates: start: 20121025, end: 20130517
  3. SALBUTAMOL                         /00139502/ [Concomitant]
     Dosage: 24 UNK, UNKNOWN/D
     Route: 065
     Dates: start: 20130518, end: 20130521
  4. SALBUTAMOL                         /00139502/ [Concomitant]
     Dosage: 8 DF, UNKNOWN/D
     Route: 065
     Dates: start: 20130522
  5. PARACETAMOL [Concomitant]
     Indication: PRODUCT USED FOR UNKNOWN INDICATION
     Dosage: 2000 MG, UNKNOWN/D
     Route: 065
     Dates: start: 20121025
  6. HYDROXYPROPYL METHYLCELLULOSE [Concomitant]
     Indication: PRODUCT USED FOR UNKNOWN INDICATION
     Dosage: 4 DF, UNKNOWN/D
     Route: 047
     Dates: start: 20121220
  7. IPRATROPIUM BROMIDE [Concomitant]
     Indication: PRODUCT USED FOR UNKNOWN INDICATION
     Dosage: 8 DF, UNKNOWN/D
     Route: 065
     Dates: start: 20130215, end: 20130517
  8. IPRATROPIUM BROMIDE [Concomitant]
     Dosage: 8 DF, UNKNOWN/D
     Route: 065
     Dates: start: 20130522
  9. THEOPHYLLINE [Concomitant]
     Indication: PRODUCT USED FOR UNKNOWN INDICATION
     Dosage: UNK
     Route: 065
  10. PRAZOSIN                           /00338402/ [Concomitant]
     Indication: PRODUCT USED FOR UNKNOWN INDICATION
     Dosage: 2 MG, UNKNOWN/D
     Route: 065
     Dates: start: 20130518, end: 20130521
  11. METOCLOPRAMIDE [Concomitant]
     Indication: PRODUCT USED FOR UNKNOWN INDICATION
     Dosage: 30 MG, UNKNOWN/D
     Route: 065
     Dates: start: 20130526, end: 20130529
  12. AMITRIPTYLINE [Concomitant]
     Indication: PRODUCT USED FOR UNKNOWN INDICATION
     Dosage: 10 MG, UNKNOWN/D
     Route: 065
     Dates: start: 20130518, end: 20130521
  13. PREDNISOLON                        /00016201/ [Concomitant]
     Indication: PRODUCT USED FOR UNKNOWN INDICATION
     Dosage: 30 MG, UNKNOWN/D
     Route: 065
     Dates: start: 20130519, end: 20130522
  14. TETRACOSACTIDE [Concomitant]
     Indication: PRODUCT USED FOR UNKNOWN INDICATION
     Dosage: 0.001 MG, UNKNOWN/D
     Route: 065
     Dates: start: 20130522, end: 20130523
  15. ENALAPRIL [Concomitant]
     Indication: PRODUCT USED FOR UNKNOWN INDICATION
     Dosage: 5 MG, UNKNOWN/D
     Route: 065
     Dates: start: 20130518, end: 20130521
  16. FRUSEMIDE                          /00032601/ [Concomitant]
     Indication: PRODUCT USED FOR UNKNOWN INDICATION
     Dosage: 20 MG, UNKNOWN/D
     Route: 065
     Dates: start: 20130526
  17. LEVOFLOXACIN [Concomitant]
     Indication: PRODUCT USED FOR UNKNOWN INDICATION
     Dosage: 500 MG, UNKNOWN/D
     Route: 065
     Dates: start: 20130601, end: 20130607
  18. TRIAMCINOLONE [Concomitant]
     Indication: PRODUCT USED FOR UNKNOWN INDICATION
     Dosage: UNK
     Route: 065
     Dates: start: 20130606
  19. SILVER SULPHADIAZINE [Concomitant]
     Indication: PRODUCT USED FOR UNKNOWN INDICATION
     Dosage: UNK
     Route: 065
     Dates: start: 20130606

REACTIONS (9)
  - Cardiac failure congestive [Recovered/Resolved]
  - Hyponatraemia [Unknown]
  - Hypokalaemia [Unknown]
  - Hypoalbuminaemia [Unknown]
  - Anaemia [Unknown]
  - Respiratory failure [Unknown]
  - Sinus tachycardia [Unknown]
  - Chronic obstructive pulmonary disease [Recovered/Resolved]
  - Hypovolaemic shock [Recovered/Resolved]
